FAERS Safety Report 24094311 (Version 1)
Quarter: 2024Q3

REPORT INFORMATION
  Report Type: Spontaneous
  Country: JP (occurrence: JP)
  Receive Date: 20240716
  Receipt Date: 20240716
  Transmission Date: 20241017
  Serious: No
  Sender: PIERRE FABRE MEDICAMENT
  Company Number: JP-maruho-EVD202400832PFM

PATIENT
  Age: 3 Month
  Sex: Female
  Weight: 5.82 kg

DRUGS (6)
  1. PROPRANOLOL HYDROCHLORIDE [Suspect]
     Active Substance: PROPRANOLOL HYDROCHLORIDE
     Indication: Infantile haemangioma
     Dosage: 0.4 MG/KG (0.6ML?2)
     Route: 048
     Dates: start: 20240320, end: 20240321
  2. PROPRANOLOL HYDROCHLORIDE [Suspect]
     Active Substance: PROPRANOLOL HYDROCHLORIDE
     Dosage: 0.8 MG/KG (1.3ML?2)
     Route: 048
     Dates: start: 20240322, end: 20240323
  3. PROPRANOLOL HYDROCHLORIDE [Suspect]
     Active Substance: PROPRANOLOL HYDROCHLORIDE
     Dosage: 1.3 MG/KG (2ML?2)
     Route: 048
     Dates: start: 20240324, end: 20240324
  4. PROPRANOLOL HYDROCHLORIDE [Suspect]
     Active Substance: PROPRANOLOL HYDROCHLORIDE
     Dosage: 1.3 MG/KG (2ML?1 MORNING)
     Route: 048
     Dates: start: 20240325, end: 20240325
  5. PROPRANOLOL HYDROCHLORIDE [Suspect]
     Active Substance: PROPRANOLOL HYDROCHLORIDE
     Dosage: 0.9 MG/KG (1.4ML?1, NIGHT)
     Route: 048
     Dates: start: 20240325, end: 20240325
  6. MENATETRENONE [Concomitant]
     Active Substance: MENATETRENONE
     Indication: Prophylaxis
     Dosage: 1 ML, AFTER BREAKFAST
     Route: 048
     Dates: start: 20240323, end: 20240323

REACTIONS (1)
  - Bradycardia [Recovered/Resolved]

NARRATIVE: CASE EVENT DATE: 20240324
